FAERS Safety Report 11474701 (Version 1)
Quarter: 2015Q3

REPORT INFORMATION
  Report Type: Spontaneous
  Country: US (occurrence: None)
  Receive Date: 20150902
  Receipt Date: 20150902
  Transmission Date: 20151125
  Serious: Yes (Hospitalization)
  Sender: FDA-Public Use
  Company Number: A-US2014-107241

PATIENT
  Age: 71 Year
  Sex: Female

DRUGS (5)
  1. ADCIRCA [Concomitant]
     Active Substance: TADALAFIL
  2. OXYGEN. [Concomitant]
     Active Substance: OXYGEN
  3. ASPIRIN (ACETYLSALICYLIC ACID) [Concomitant]
     Active Substance: ASPIRIN
  4. VELETRI [Suspect]
     Active Substance: EPOPROSTENOL
     Indication: PULMONARY ARTERIAL HYPERTENSION
     Dosage: 14 NG/KG, PER MIN, INTRAVENOUS
     Route: 042
     Dates: start: 20141010
  5. CARDIZEM (DILTIAZEM) [Concomitant]

REACTIONS (13)
  - Dyspnoea [None]
  - Fatigue [None]
  - Pain in jaw [None]
  - Fluid overload [None]
  - Vomiting [None]
  - Pain [None]
  - Fluid retention [None]
  - Neck pain [None]
  - Flushing [None]
  - Headache [None]
  - Dry skin [None]
  - Constipation [None]
  - Nausea [None]
